FAERS Safety Report 10061676 (Version 1)
Quarter: 2014Q2

REPORT INFORMATION
  Report Type: Spontaneous
  Country: US (occurrence: US)
  Receive Date: 20140407
  Receipt Date: 20140407
  Transmission Date: 20141212
  Serious: No
  Sender: FDA-Public Use
  Company Number: US-TARO-2013P1004876

PATIENT
  Age: 51 Year
  Sex: Female
  Weight: 63.5 kg

DRUGS (5)
  1. FLUOROURACIL TOPICAL CREAM USP 5% [Suspect]
     Route: 061
     Dates: start: 20130403
  2. SIMVASTATIN [Concomitant]
  3. PLAVIX [Concomitant]
  4. METOPROLOL [Concomitant]
  5. TRIAMCINOLONE CREAM [Concomitant]
     Dates: start: 201302

REACTIONS (2)
  - Skin hyperpigmentation [Not Recovered/Not Resolved]
  - Off label use [Not Recovered/Not Resolved]
